FAERS Safety Report 4489542-0 (Version None)
Quarter: 2004Q4

REPORT INFORMATION
  Report Type: 
  Country: None (occurrence: None)
  Receive Date: 20041022
  Receipt Date: 20041007
  Transmission Date: 20050328
  Serious: Yes (Hospitalization)
  Sender: FDA-Public Use
  Company Number: WAES 0410USA01556

PATIENT
  Age: 72 Year
  Sex: Female

DRUGS (4)
  1. PEPCID [Suspect]
     Dosage: IV
     Route: 042
     Dates: start: 20040928, end: 20040928
  2. SULPERAZONE (CEFOPERAZONE SODIUM (+) SULBACTAM [Suspect]
     Dates: start: 20040928, end: 20040930
  3. ALPROSTADIL [Suspect]
     Dates: start: 20040928, end: 20040930
  4. MULTIVITAMIN [Concomitant]

REACTIONS (4)
  - EOSINOPHIL PERCENTAGE INCREASED [None]
  - HEPATITIS [None]
  - MARKEDLY REDUCED DIETARY INTAKE [None]
  - WHITE BLOOD CELL COUNT INCREASED [None]
